FAERS Safety Report 5864147-5 (Version None)
Quarter: 2008Q3

REPORT INFORMATION
  Report Type: 
  Country: None (occurrence: None)
  Receive Date: 20080829
  Receipt Date: 20080822
  Transmission Date: 20090109
  Serious: Yes (Hospitalization)
  Sender: FDA-Public Use
  Company Number: US-JNJFOC-20080707352

PATIENT
  Sex: Female
  Weight: 72.58 kg

DRUGS (7)
  1. INVEGA [Suspect]
     Indication: PARANOIA
     Route: 048
  2. INVEGA [Suspect]
     Indication: ANXIETY
     Route: 048
  3. INVEGA [Suspect]
     Indication: DRUG THERAPY
     Route: 048
  4. INVEGA [Suspect]
     Indication: SCHIZOAFFECTIVE DISORDER
     Route: 048
  5. CYMBALTA [Concomitant]
     Indication: DEPRESSION
  6. PROZAC [Concomitant]
     Indication: DRUG USE FOR UNKNOWN INDICATION
  7. PRISTIQ [Concomitant]
     Indication: DEPRESSION

REACTIONS (2)
  - GRAND MAL CONVULSION [None]
  - TREMOR [None]
